FAERS Safety Report 5871633-0 (Version None)
Quarter: 2008Q3

REPORT INFORMATION
  Report Type: 
  Country: None (occurrence: None)
  Receive Date: 20080902
  Receipt Date: 20060127
  Transmission Date: 20090109
  Serious: Yes (Death)
  Sender: FDA-Public Use
  Company Number: 2008AL009347

PATIENT
  Age: 55 Year
  Sex: Male
  Weight: 86.3 kg

DRUGS (4)
  1. METFORMIN HYDROCHLORIDE [Suspect]
     Dosage: PO
     Route: 048
     Dates: start: 20050401
  2. BENDROFLUMETHIAZIDE [Concomitant]
  3. ROSIGLITAZONE [Concomitant]
  4. ENALAPRIL MALEATE [Concomitant]

REACTIONS (1)
  - MYOCARDIAL INFARCTION [None]
